FAERS Safety Report 8589404-3 (Version None)
Quarter: 2012Q3

REPORT INFORMATION
  Report Type: 
  Country: None (occurrence: None)
  Receive Date: 20120813
  Receipt Date: 20120802
  Transmission Date: 20120928
  Serious: Yes (Hospitalization)
  Sender: FDA-Public Use
  Company Number: IT-PFIZER INC-2012195893

PATIENT
  Age: 81 Year
  Sex: Female

DRUGS (7)
  1. GABAPENTIN [Concomitant]
  2. BISOPROLOL [Concomitant]
  3. CLONAZEPAM [Concomitant]
  4. MS CONTIN [Suspect]
     Indication: PAIN
     Dosage: UNK
     Route: 065
     Dates: start: 20120627, end: 20120630
  5. ORAMORPH SR [Suspect]
     Dosage: 12 DROP, DAILY
     Route: 048
     Dates: start: 20120627, end: 20120630
  6. OMEPRAZOLE [Concomitant]
  7. FEMARA [Concomitant]

REACTIONS (2)
  - RENAL FAILURE ACUTE [None]
  - LETHARGY [None]
